FAERS Safety Report 8089595-7 (Version None)
Quarter: 2012Q1

REPORT INFORMATION
  Report Type: 
  Country: None (occurrence: None)
  Receive Date: 20120128
  Receipt Date: 20110720
  Transmission Date: 20120608
  Serious: No
  Sender: FDA-Public Use
  Company Number: US-ABBOTT-11P-163-0726327-00

PATIENT
  Age: 47 Year
  Sex: Male

DRUGS (7)
  1. LISINOPRIL [Concomitant]
     Indication: HYPERTENSION
     Dosage: DAILY
  2. PRILOSEC [Concomitant]
     Indication: ULCER
  3. FOLIC ACID [Concomitant]
     Indication: PSORIATIC ARTHROPATHY
  4. HUMIRA [Suspect]
     Indication: PSORIATIC ARTHROPATHY
     Dates: start: 20110415, end: 20110507
  5. PRILOSEC [Concomitant]
     Indication: GASTROOESOPHAGEAL REFLUX DISEASE
     Route: 048
  6. METHOTREXATE [Suspect]
     Indication: PRODUCT USED FOR UNKNOWN INDICATION
  7. UNKNOWN MEDICATION [Concomitant]
     Indication: BLOOD PRESSURE

REACTIONS (3)
  - DRUG INEFFECTIVE [None]
  - HEADACHE [None]
  - MIGRAINE [None]
